FAERS Safety Report 19727355 (Version 2)
Quarter: 2022Q1

REPORT INFORMATION
  Report Type: Report from Study
  Country: US (occurrence: US)
  Receive Date: 20210820
  Receipt Date: 20220127
  Transmission Date: 20220423
  Serious: Yes (Death, Hospitalization, Other)
  Sender: FDA-Public Use
  Company Number: US-GLAXOSMITHKLINE-US2021AMR172197

PATIENT
  Age: 61 Year
  Sex: Female

DRUGS (1)
  1. BELANTAMAB MAFODOTIN [Suspect]
     Active Substance: BELANTAMAB MAFODOTIN
     Indication: Plasma cell myeloma
     Dosage: 2.5 MG/KG
     Route: 042
     Dates: start: 20210811, end: 20210820

REACTIONS (5)
  - Plasma cell myeloma [Fatal]
  - Hypoxia [Unknown]
  - Infusion related reaction [Unknown]
  - Cyanosis [Unknown]
  - Incorrect dose administered [Unknown]

NARRATIVE: CASE EVENT DATE: 20210811
